FAERS Safety Report 25001310 (Version 3)
Quarter: 2025Q3

REPORT INFORMATION
  Report Type: Spontaneous
  Country: US (occurrence: US)
  Receive Date: 20250223
  Receipt Date: 20250820
  Transmission Date: 20251021
  Serious: No
  Sender: SANOFI AVENTIS
  Company Number: US-SA-2025SA053063

PATIENT
  Age: 77 Year
  Sex: Female

DRUGS (1)
  1. DUPIXENT [Suspect]
     Active Substance: DUPILUMAB
     Indication: Dermatitis atopic
     Dosage: 300 MG, QOW
     Route: 058
     Dates: start: 202412

REACTIONS (7)
  - Nausea [Unknown]
  - Pruritus [Unknown]
  - Vision blurred [Unknown]
  - Dizziness [Unknown]
  - Speech disorder [Unknown]
  - Vocal cord disorder [Unknown]
  - Drug ineffective [Unknown]
